FAERS Safety Report 13790137 (Version 1)
Quarter: 2017Q3

REPORT INFORMATION
  Report Type: Spontaneous
  Country: US (occurrence: US)
  Receive Date: 20170725
  Receipt Date: 20170725
  Transmission Date: 20171127
  Serious: Yes (Life-Threatening, Hospitalization, Other)
  Sender: FDA-Public Use
  Company Number: US-TORRENT-00003210

PATIENT
  Age: 24 Year
  Sex: Male

DRUGS (5)
  1. PRAZOSIN. [Suspect]
     Active Substance: PRAZOSIN
  2. QUETIAPINE. [Suspect]
     Active Substance: QUETIAPINE
  3. CYCLOBENZAPRINE. [Suspect]
     Active Substance: CYCLOBENZAPRINE
  4. DIVALPROEX SODIUM. [Suspect]
     Active Substance: DIVALPROEX SODIUM
  5. ATENOLOL. [Suspect]
     Active Substance: ATENOLOL

REACTIONS (7)
  - Sinus bradycardia [Recovered/Resolved]
  - Acute respiratory distress syndrome [Recovered/Resolved]
  - Vasoplegia syndrome [Recovered/Resolved]
  - Aspiration [Recovered/Resolved]
  - Unresponsive to stimuli [Recovered/Resolved]
  - Hyperlactacidaemia [Recovered/Resolved]
  - Overdose [Recovered/Resolved]
